FAERS Safety Report 14663406 (Version 7)
Quarter: 2021Q1

REPORT INFORMATION
  Report Type: Spontaneous
  Country: US (occurrence: US)
  Receive Date: 20180321
  Receipt Date: 20210311
  Transmission Date: 20210419
  Serious: Yes (Other)
  Sender: FDA-Public Use
  Company Number: US-PFIZER INC-2018115320

PATIENT
  Age: 61 Year
  Sex: Female
  Weight: 76 kg

DRUGS (1)
  1. XELJANZ XR [Suspect]
     Active Substance: TOFACITINIB CITRATE
     Indication: RHEUMATOID ARTHRITIS
     Dosage: 11 MG, DAILY
     Route: 048
     Dates: start: 20180304

REACTIONS (5)
  - Sinusitis [Not Recovered/Not Resolved]
  - Illness [Unknown]
  - Respiratory tract infection [Unknown]
  - Herpes zoster [Unknown]
  - Hypotension [Unknown]

NARRATIVE: CASE EVENT DATE: 201803
